FAERS Safety Report 21305668 (Version 1)
Quarter: 2022Q3

REPORT INFORMATION
  Report Type: Spontaneous
  Country: US (occurrence: US)
  Receive Date: 20220908
  Receipt Date: 20220908
  Transmission Date: 20221027
  Serious: No
  Sender: FDA-Public Use
  Company Number: US-STRIDES ARCOLAB LIMITED-2022SP009856

PATIENT
  Age: 38 Year
  Sex: Female

DRUGS (4)
  1. AMANTADINE [Suspect]
     Active Substance: AMANTADINE
     Indication: Marchiafava-Bignami disease
     Dosage: 100 MILLIGRAM, BID
     Route: 048
  2. THIAMINE [Concomitant]
     Active Substance: THIAMINE
     Indication: Marchiafava-Bignami disease
     Dosage: UNK
     Route: 042
  3. METHYLPREDNISOLONE [Concomitant]
     Active Substance: METHYLPREDNISOLONE
     Indication: Marchiafava-Bignami disease
     Dosage: UNK
     Route: 042
  4. VITAMINS [Concomitant]
     Active Substance: VITAMINS
     Indication: Marchiafava-Bignami disease
     Dosage: UNK
     Route: 065

REACTIONS (1)
  - Off label use [Unknown]
